FAERS Safety Report 18047828 (Version 1)
Quarter: 2020Q3

REPORT INFORMATION
  Report Type: Spontaneous
  Country: US (occurrence: US)
  Receive Date: 20200721
  Receipt Date: 20200721
  Transmission Date: 20201103
  Serious: No
  Sender: FDA-Public Use
  Company Number: US-BAYER-2020-145791

PATIENT
  Age: 52 Year
  Sex: Female

DRUGS (1)
  1. MIRENA [Suspect]
     Active Substance: LEVONORGESTREL
     Indication: UTERINE HAEMORRHAGE
     Dosage: 20 ?G PER DAY CONTINUOUSLY
     Route: 015
     Dates: start: 20200629

REACTIONS (12)
  - Metrorrhagia [Recovered/Resolved]
  - Hypomenorrhoea [None]
  - Dizziness [Not Recovered/Not Resolved]
  - Adverse reaction [Not Recovered/Not Resolved]
  - Product use in unapproved indication [None]
  - Nausea [Not Recovered/Not Resolved]
  - Contraindicated device used [None]
  - Feeling abnormal [Not Recovered/Not Resolved]
  - Visual impairment [Not Recovered/Not Resolved]
  - Medical device monitoring error [None]
  - Off label use [None]
  - Vertigo [Not Recovered/Not Resolved]

NARRATIVE: CASE EVENT DATE: 20200629
